FAERS Safety Report 24638218 (Version 1)
Quarter: 2024Q4

REPORT INFORMATION
  Report Type: Spontaneous
  Country: GB (occurrence: GB)
  Receive Date: 20241119
  Receipt Date: 20241119
  Transmission Date: 20250115
  Serious: Yes (Other)
  Sender: GLAXOSMITHKLINE
  Company Number: None

PATIENT

DRUGS (3)
  1. SUMATRIPTAN [Suspect]
     Active Substance: SUMATRIPTAN
     Indication: Ill-defined disorder
     Dosage: 100 MG
     Route: 065
  2. MELATONIN [Concomitant]
     Active Substance: MELATONIN
     Indication: Ill-defined disorder
     Dosage: 3 DF, QD (3 TABLETS AT NIGHT)
     Route: 065
     Dates: start: 20240531
  3. FLUOXETINE [Concomitant]
     Active Substance: FLUOXETINE HYDROCHLORIDE
     Indication: Ill-defined disorder
     Dosage: 1 DF, QD (TAKE ONE TABLET DAILY)
     Route: 065
     Dates: start: 20240807

REACTIONS (2)
  - Chest discomfort [Unknown]
  - Muscle tightness [Unknown]
